FAERS Safety Report 6137066-7 (Version None)
Quarter: 2009Q1

REPORT INFORMATION
  Report Type: 
  Country: None (occurrence: None)
  Receive Date: 20090330
  Receipt Date: 20090317
  Transmission Date: 20090719
  Serious: Yes (Death)
  Sender: FDA-Public Use
  Company Number: JP-ROCHE-622651

PATIENT
  Sex: Male

DRUGS (1)
  1. XELODA [Suspect]
     Indication: RECTAL CANCER
     Dosage: DRUG NAME: XELODA 300
     Route: 048
     Dates: start: 20081101, end: 20090209

REACTIONS (3)
  - DIARRHOEA [None]
  - OESOPHAGEAL RUPTURE [None]
  - VOMITING [None]
